FAERS Safety Report 8371956-X (Version None)
Quarter: 2012Q2

REPORT INFORMATION
  Report Type: 
  Country: None (occurrence: None)
  Receive Date: 20120518
  Receipt Date: 20120515
  Transmission Date: 20120825
  Serious: Yes (Disabling)
  Sender: FDA-Public Use
  Company Number: US-MERCK-1203USA02425

PATIENT
  Age: 79 Year
  Sex: Male
  Weight: 76 kg

DRUGS (4)
  1. AMANTADINE HYDROCHLORIDE [Concomitant]
     Route: 065
  2. ROPINIROLE [Concomitant]
     Route: 065
  3. SINEMET CR [Suspect]
     Indication: PARKINSON'S DISEASE
     Dosage: 1-1.5 TAB, 3-4 X 1 DAY
     Route: 048
     Dates: start: 20020101
  4. SELEGILINE [Concomitant]
     Route: 065

REACTIONS (6)
  - DISABILITY [None]
  - WRONG TECHNIQUE IN DRUG USAGE PROCESS [None]
  - NERVOUSNESS [None]
  - DRUG INEFFECTIVE [None]
  - OVERDOSE [None]
  - FEELING ABNORMAL [None]
